FAERS Safety Report 8070856-2 (Version None)
Quarter: 2012Q1

REPORT INFORMATION
  Report Type: 
  Country: None (occurrence: None)
  Receive Date: 20120125
  Receipt Date: 20120116
  Transmission Date: 20120608
  Serious: Yes (Hospitalization)
  Sender: FDA-Public Use
  Company Number: IT-GLAXOSMITHKLINE-B0776909A

PATIENT
  Sex: Female

DRUGS (8)
  1. DALTEPARINA [Concomitant]
  2. METHOTREXATE [Concomitant]
  3. PROPAFENONE HCL [Suspect]
     Indication: ARRHYTHMIA SUPRAVENTRICULAR
     Route: 048
     Dates: start: 20111228, end: 20111230
  4. CLOPIDOGREL [Concomitant]
  5. CLARITHROMYCIN [Concomitant]
  6. RANITIDINE [Concomitant]
  7. ATORVASTATIN [Concomitant]
  8. CEFTRIAXONE SODIUM [Concomitant]

REACTIONS (2)
  - CYTOLYTIC HEPATITIS [None]
  - CHOLESTASIS [None]
